FAERS Safety Report 4566818-X (Version None)
Quarter: 2005Q1

REPORT INFORMATION
  Report Type: 
  Country: None (occurrence: None)
  Receive Date: 20050201
  Receipt Date: 20020418
  Transmission Date: 20050727
  Serious: Yes (Other)
  Sender: FDA-Public Use
  Company Number: US-BRISTOL-MYERS SQUIBB COMPANY-11832540

PATIENT
  Age: 32 Year
  Sex: Female

DRUGS (6)
  1. STADOL [Suspect]
     Indication: PAIN
     Route: 045
     Dates: start: 19930401
  2. STADOL [Suspect]
     Indication: MIGRAINE
     Route: 045
     Dates: start: 19930401
  3. VALIUM [Concomitant]
  4. DEMEROL [Concomitant]
  5. COCAINE [Concomitant]
  6. AMPHETAMINE [Concomitant]

REACTIONS (1)
  - DEPENDENCE [None]
